FAERS Safety Report 20828012 (Version 1)
Quarter: 2022Q2

REPORT INFORMATION
  Report Type: Spontaneous
  Country: CN (occurrence: None)
  Receive Date: 20220513
  Receipt Date: 20220513
  Transmission Date: 20220721
  Serious: Yes (Other)
  Sender: FDA-Public Use
  Company Number: CN-ROCHE-3094448

PATIENT
  Age: 73 Year
  Sex: Female

DRUGS (18)
  1. MABTHERA [Suspect]
     Active Substance: RITUXIMAB
     Indication: Diffuse large B-cell lymphoma
     Dosage: R-CHOP
     Route: 065
     Dates: start: 20190705
  2. MABTHERA [Suspect]
     Active Substance: RITUXIMAB
     Dosage: R-MINICHOP
     Route: 065
     Dates: start: 20190810
  3. MABTHERA [Suspect]
     Active Substance: RITUXIMAB
     Dosage: R-CHOP
     Route: 065
     Dates: start: 20191219
  4. GAZYVA [Suspect]
     Active Substance: OBINUTUZUMAB
     Indication: Diffuse large B-cell lymphoma
     Dosage: ZANUBRUTINIB +OBINUTUZUMAB +BENDAMUSTINE
     Route: 042
     Dates: start: 20210901
  5. CYCLOPHOSPHAMIDE [Concomitant]
     Active Substance: CYCLOPHOSPHAMIDE
     Indication: Diffuse large B-cell lymphoma
     Dosage: R-CHOP
     Route: 065
     Dates: start: 20190705
  6. CYCLOPHOSPHAMIDE [Concomitant]
     Active Substance: CYCLOPHOSPHAMIDE
     Dosage: R-MINICHOP
     Route: 065
     Dates: start: 20190810
  7. CYCLOPHOSPHAMIDE [Concomitant]
     Active Substance: CYCLOPHOSPHAMIDE
     Dosage: R-CHOP
     Route: 065
     Dates: start: 20191219
  8. EPIRUBICIN [Concomitant]
     Active Substance: EPIRUBICIN
     Indication: Diffuse large B-cell lymphoma
     Dosage: R-CHOP
     Route: 065
     Dates: start: 20190705
  9. EPIRUBICIN [Concomitant]
     Active Substance: EPIRUBICIN
     Dosage: R-MINICHOP
     Dates: start: 20190810
  10. EPIRUBICIN [Concomitant]
     Active Substance: EPIRUBICIN
     Dosage: R-CHOP
     Dates: start: 20191219
  11. VINDESINE [Concomitant]
     Active Substance: VINDESINE
     Indication: Diffuse large B-cell lymphoma
     Dosage: R-CHOP
     Dates: start: 20190705
  12. VINDESINE [Concomitant]
     Active Substance: VINDESINE
     Dosage: R-MINICHOP
     Dates: start: 20190810
  13. VINDESINE [Concomitant]
     Active Substance: VINDESINE
     Dosage: R-CHOP
     Dates: start: 20191219
  14. PREDNISONE ACETATE [Concomitant]
     Active Substance: PREDNISONE ACETATE
     Indication: Diffuse large B-cell lymphoma
     Dosage: R-CHOP
     Dates: start: 20190705
  15. PREDNISONE ACETATE [Concomitant]
     Active Substance: PREDNISONE ACETATE
     Dosage: R-MINICHOP
     Dates: start: 20190810
  16. PREDNISONE ACETATE [Concomitant]
     Active Substance: PREDNISONE ACETATE
     Dosage: R-CHOP
     Dates: start: 20191219
  17. ZANUBRUTINIB [Concomitant]
     Active Substance: ZANUBRUTINIB
     Indication: Diffuse large B-cell lymphoma
     Dosage: ZANUBRUTINIB +OBINUTUZUMAB +BENDAMUSTINE
     Dates: start: 20210901
  18. BENDAMUSTINE [Concomitant]
     Active Substance: BENDAMUSTINE
     Indication: Diffuse large B-cell lymphoma
     Dosage: ZANUBRUTINIB +OBINUTUZUMAB +BENDAMUSTINE
     Dates: start: 20210901

REACTIONS (2)
  - Myelosuppression [Unknown]
  - Off label use [Unknown]
